FAERS Safety Report 8853194 (Version 2)
Quarter: 2012Q4

REPORT INFORMATION
  Report Type: 
  Country: US (occurrence: US)
  Receive Date: 20121022
  Receipt Date: 20121107
  Transmission Date: 20130627
  Serious: No
  Sender: FDA-Public Use
  Company Number: US-PFIZER INC-2012261193

PATIENT
  Sex: Female

DRUGS (2)
  1. EFFEXOR XR [Suspect]
     Indication: DEPRESSION AGGRAVATED
     Dosage: 37.5 mg, 1x/day
     Route: 048
     Dates: start: 2012, end: 2012
  2. EFFEXOR XR [Suspect]
     Dosage: 37.5 mg, 2x/day
     Route: 048
     Dates: start: 2012

REACTIONS (6)
  - Drug effect incomplete [Unknown]
  - Drug dose omission [Unknown]
  - Dizziness [Unknown]
  - Drug ineffective [Unknown]
  - Mood altered [Unknown]
  - Impaired driving ability [Unknown]
